FAERS Safety Report 20647270 (Version 1)
Quarter: 2022Q1

REPORT INFORMATION
  Report Type: Report from Study
  Country: DE (occurrence: DE)
  Receive Date: 20220329
  Receipt Date: 20220329
  Transmission Date: 20220423
  Serious: Yes (Hospitalization)
  Sender: FDA-Public Use
  Company Number: DE-JNJFOC-20220342750

PATIENT
  Age: 46 Year
  Weight: 90.5 kg

DRUGS (1)
  1. SPRAVATO [Suspect]
     Active Substance: ESKETAMINE
     Indication: Depression
     Dates: start: 20211026, end: 20220309

REACTIONS (1)
  - Alcoholism [Recovered/Resolved]

NARRATIVE: CASE EVENT DATE: 20220309
